FAERS Safety Report 7072871-4 (Version None)
Quarter: 2010Q4

REPORT INFORMATION
  Report Type: 
  Country: None (occurrence: None)
  Receive Date: 20101029
  Receipt Date: 20100323
  Transmission Date: 20110411
  Serious: No
  Sender: FDA-Public Use
  Company Number: A0851621A

PATIENT
  Age: 59 Year
  Sex: Female

DRUGS (4)
  1. ADVAIR DISKUS 100/50 [Suspect]
     Indication: ASTHMA
     Dosage: 1PUFF TWICE PER DAY
     Route: 055
  2. PREDNISONE [Concomitant]
  3. PROVENTIL [Concomitant]
  4. NEXIUM [Concomitant]

REACTIONS (4)
  - APHONIA [None]
  - DYSPHAGIA [None]
  - DYSPHONIA [None]
  - OROPHARYNGEAL PAIN [None]
